FAERS Safety Report 15537409 (Version 1)
Quarter: 2018Q4

REPORT INFORMATION
  Report Type: Spontaneous
  Country: US (occurrence: US)
  Receive Date: 20181022
  Receipt Date: 20181022
  Transmission Date: 20190205
  Serious: No
  Sender: FDA-Public Use
  Company Number: None

PATIENT
  Age: 65 Year
  Sex: Female
  Weight: 52.2 kg

DRUGS (2)
  1. MULTI VITAMIN SUPPLEMENT [Concomitant]
  2. XIIDRA [Suspect]
     Active Substance: LIFITEGRAST
     Indication: DRY EYE
     Dosage: ?          QUANTITY:1 DROP(S);?
     Route: 047
     Dates: start: 20181019, end: 20181019

REACTIONS (5)
  - Vision blurred [None]
  - Headache [None]
  - Dry eye [None]
  - Eye pain [None]
  - Nausea [None]

NARRATIVE: CASE EVENT DATE: 20181019
